FAERS Safety Report 6297271-6 (Version None)
Quarter: 2009Q3

REPORT INFORMATION
  Report Type: 
  Country: None (occurrence: None)
  Receive Date: 20090804
  Receipt Date: 20090804
  Transmission Date: 20100115
  Serious: Yes (Life-Threatening)
  Sender: FDA-Public Use
  Company Number: None

PATIENT
  Sex: Male
  Weight: 77.1115 kg

DRUGS (1)
  1. FERROUS SULFATE TAB [Suspect]
     Indication: ANAEMIA
     Dosage: 325 MG ONCE DAILY ORAL
     Route: 048
     Dates: start: 20070710, end: 20071020

REACTIONS (6)
  - ABDOMINAL PAIN [None]
  - ACIDOSIS [None]
  - DIARRHOEA [None]
  - DRUG INEFFECTIVE [None]
  - DYSPEPSIA [None]
  - MUSCLE SPASMS [None]
